FAERS Safety Report 17545027 (Version 1)
Quarter: 2020Q1

REPORT INFORMATION
  Report Type: Spontaneous
  Country: JP (occurrence: JP)
  Receive Date: 20200316
  Receipt Date: 20200316
  Transmission Date: 20200409
  Serious: Yes (Hospitalization)
  Sender: FDA-Public Use
  Company Number: JP-ELI_LILLY_AND_COMPANY-JP202003002804

PATIENT
  Age: 17 Year
  Sex: Female
  Weight: 39 kg

DRUGS (6)
  1. ZYPREXA ZYDIS [Suspect]
     Active Substance: OLANZAPINE
     Indication: ANXIETY
     Dosage: 2.5 MG, DAILY
     Route: 048
     Dates: start: 20191128, end: 20191223
  2. GOOFICE [Concomitant]
     Active Substance: ELOBIXIBAT
     Route: 048
  3. LUNESTA [Concomitant]
     Active Substance: ESZOPICLONE
     Route: 048
  4. MAGNESIUM OXIDE. [Concomitant]
     Active Substance: MAGNESIUM OXIDE
     Route: 048
  5. ZYPREXA ZYDIS [Suspect]
     Active Substance: OLANZAPINE
     Indication: OBSESSIVE-COMPULSIVE SYMPTOM
  6. ZYPREXA ZYDIS [Suspect]
     Active Substance: OLANZAPINE
     Indication: INSOMNIA

REACTIONS (1)
  - Hepatic function abnormal [Recovering/Resolving]

NARRATIVE: CASE EVENT DATE: 20191223
